FAERS Safety Report 5995197-6 (Version None)
Quarter: 2008Q4

REPORT INFORMATION
  Report Type: 
  Country: None (occurrence: None)
  Receive Date: 20081212
  Receipt Date: 20080610
  Transmission Date: 20090506
  Serious: No
  Sender: FDA-Public Use
  Company Number: US-AMGEN-KDL281784

PATIENT
  Sex: Female

DRUGS (1)
  1. ENBREL [Suspect]
     Indication: PSORIASIS
     Route: 058
     Dates: start: 20080328, end: 20080522

REACTIONS (6)
  - BURNING SENSATION [None]
  - LIP SWELLING [None]
  - PRURITUS [None]
  - RASH PRURITIC [None]
  - STOMATITIS [None]
  - URTICARIA [None]
